FAERS Safety Report 16477218 (Version 1)
Quarter: 2019Q2

REPORT INFORMATION
  Report Type: Spontaneous
  Country: FR (occurrence: FR)
  Receive Date: 20190626
  Receipt Date: 20190626
  Transmission Date: 20190711
  Serious: Yes (Other)
  Sender: FDA-Public Use
  Company Number: FR-TEVA-2019-FR-1067006

PATIENT
  Age: 82 Year
  Sex: Female

DRUGS (1)
  1. FURADANTINE 50 MG, CAPSULE [Suspect]
     Active Substance: NITROFURANTOIN
     Indication: CYSTITIS
     Dosage: 6 DOSAGE FORMS DAILY;
     Route: 048
     Dates: start: 20190520

REACTIONS (2)
  - Burning sensation [Not Recovered/Not Resolved]
  - Muscle spasms [Not Recovered/Not Resolved]

NARRATIVE: CASE EVENT DATE: 20190521
